FAERS Safety Report 9454941 (Version 1)
Quarter: 2013Q3

REPORT INFORMATION
  Report Type: Spontaneous
  Country: US (occurrence: US)
  Receive Date: 20130813
  Receipt Date: 20130813
  Transmission Date: 20140515
  Serious: Yes (Other)
  Sender: FDA-Public Use
  Company Number: US-ROCHE-1255020

PATIENT
  Age: 87 Year
  Sex: Male

DRUGS (2)
  1. RANIBIZUMAB [Suspect]
     Indication: AGE-RELATED MACULAR DEGENERATION
     Route: 050
  2. RANIBIZUMAB [Suspect]
     Indication: NEOVASCULARISATION
     Dosage: RESTARTED
     Route: 050

REACTIONS (2)
  - Subretinal fluid [Not Recovered/Not Resolved]
  - Drug resistance [Unknown]
